FAERS Safety Report 8771844 (Version 2)
Quarter: 2012Q4

REPORT INFORMATION
  Report Type: Report from Study
  Country: DE (occurrence: DE)
  Receive Date: 20120906
  Receipt Date: 20120906
  Transmission Date: 20130627
  Serious: Yes (Hospitalization, Other)
  Sender: FDA-Public Use
  Company Number: DE-NAPPMUNDI-DEU-2011-0007271

PATIENT
  Age: 0 Year
  Sex: Female
  Weight: 4.6 kg

DRUGS (3)
  1. MORPHINE SULFATE [Suspect]
     Indication: MATERNAL EXPOSURE DURING PREGNANCY
     Dosage: 1120 mg, daily
     Route: 064
     Dates: start: 20100204, end: 20100326
  2. METHADONE [Suspect]
     Indication: MATERNAL EXPOSURE DURING PREGNANCY
     Route: 064
  3. BETA BLOCKING AGENTS [Concomitant]

REACTIONS (6)
  - Atrial septal defect [Unknown]
  - Pulmonary valve stenosis [Unknown]
  - Drug withdrawal syndrome neonatal [Unknown]
  - Hypoglycaemia [Unknown]
  - Agitation [None]
  - Left ventricular hypertrophy [None]
